FAERS Safety Report 6153135-X (Version None)
Quarter: 2009Q2

REPORT INFORMATION
  Report Type: 
  Country: None (occurrence: None)
  Receive Date: 20090413
  Receipt Date: 20090408
  Transmission Date: 20091009
  Serious: Yes (Other)
  Sender: FDA-Public Use
  Company Number: US-RB-008828-09

PATIENT
  Age: 41 Year
  Sex: Female

DRUGS (7)
  1. SUBUTEX [Suspect]
     Route: 060
     Dates: start: 20090124
  2. SUBOXONE [Suspect]
     Route: 060
     Dates: start: 20080722, end: 20090123
  3. ALBUTEROL [Concomitant]
     Indication: ASTHMA
     Dosage: UNKNOWN DOSE.
     Route: 055
  4. SYNTHROID [Concomitant]
     Indication: HYPOTHYROIDISM
     Dosage: UNKNOWN DOSE.
     Route: 048
  5. SINGULAIR [Concomitant]
     Indication: ASTHMA
     Dosage: UNKNOWN DOSE
     Route: 065
  6. HYDROCODONE BITARTRATE [Suspect]
     Indication: DRUG USE FOR UNKNOWN INDICATION
     Dosage: DOSING INFORMATION UNKNOWN.
     Route: 065
  7. VALIUM [Suspect]
     Indication: DRUG USE FOR UNKNOWN INDICATION
     Dosage: DOSING INFORMATION UNKNOWN.
     Route: 065

REACTIONS (2)
  - ABORTION SPONTANEOUS [None]
  - DRUG EXPOSURE DURING PREGNANCY [None]
